FAERS Safety Report 7199869-X (Version None)
Quarter: 2010Q4

REPORT INFORMATION
  Report Type: 
  Country: None (occurrence: None)
  Receive Date: 20101228
  Receipt Date: 20101222
  Transmission Date: 20110411
  Serious: No
  Sender: FDA-Public Use
  Company Number: US-PFIZER INC-2010113758

PATIENT
  Sex: Female
  Weight: 63.492 kg

DRUGS (2)
  1. AMLODIPINE BESYLATE [Suspect]
     Indication: HYPERTENSION
     Dosage: 5 MG, UNK
     Route: 048
  2. ASPIRIN [Concomitant]
     Dosage: UNK, DAILY

REACTIONS (6)
  - FEELING ABNORMAL [None]
  - INSOMNIA [None]
  - NIGHT SWEATS [None]
  - OEDEMA PERIPHERAL [None]
  - SOMNOLENCE [None]
  - WEIGHT INCREASED [None]
